FAERS Safety Report 17865885 (Version 1)
Quarter: 2020Q2

REPORT INFORMATION
  Report Type: Spontaneous
  Country: FR (occurrence: FR)
  Receive Date: 20200605
  Receipt Date: 20200605
  Transmission Date: 20200714
  Serious: Yes (Life-Threatening, Other)
  Sender: FDA-Public Use
  Company Number: FR-MYLANLABS-2020M1054507

PATIENT
  Age: 2 Year
  Sex: Female

DRUGS (15)
  1. METHOTREXATE. [Suspect]
     Active Substance: METHOTREXATE
     Indication: METASTASES TO CENTRAL NERVOUS SYSTEM
     Dosage: 1 G/M2
  2. RITUXIMAB. [Suspect]
     Active Substance: RITUXIMAB
     Indication: METASTASES TO CENTRAL NERVOUS SYSTEM
     Dosage: UNK
  3. CYTARABINE. [Suspect]
     Active Substance: CYTARABINE
     Indication: METASTASES TO BONE MARROW
  4. ETOPOSIDE. [Suspect]
     Active Substance: ETOPOSIDE
     Indication: DIFFUSE LARGE B-CELL LYMPHOMA
  5. ARACYTINE [Suspect]
     Active Substance: CYTARABINE
     Indication: DIFFUSE LARGE B-CELL LYMPHOMA
  6. ETOPOSIDE. [Suspect]
     Active Substance: ETOPOSIDE
     Indication: METASTASES TO BONE MARROW
     Dosage: HIGH-DOSE, 1 COURSE
  7. ARACYTINE [Suspect]
     Active Substance: CYTARABINE
     Indication: METASTASES TO CENTRAL NERVOUS SYSTEM
     Dosage: 1.5 G/M2, 10 COURSES
  8. METHOTREXATE. [Suspect]
     Active Substance: METHOTREXATE
     Indication: METASTASES TO BONE MARROW
     Dosage: 3 G/M2
  9. METHOTREXATE. [Suspect]
     Active Substance: METHOTREXATE
     Indication: DIFFUSE LARGE B-CELL LYMPHOMA
  10. CYTARABINE. [Suspect]
     Active Substance: CYTARABINE
     Indication: METASTASES TO CENTRAL NERVOUS SYSTEM
     Dosage: HIGH-DOSE, 1 COURSE
  11. CYTARABINE. [Suspect]
     Active Substance: CYTARABINE
     Indication: DIFFUSE LARGE B-CELL LYMPHOMA
  12. RITUXIMAB. [Suspect]
     Active Substance: RITUXIMAB
     Indication: METASTASES TO BONE MARROW
  13. ARACYTINE [Suspect]
     Active Substance: CYTARABINE
     Indication: METASTASES TO BONE MARROW
  14. ETOPOSIDE. [Suspect]
     Active Substance: ETOPOSIDE
     Indication: METASTASES TO CENTRAL NERVOUS SYSTEM
  15. RITUXIMAB. [Suspect]
     Active Substance: RITUXIMAB
     Indication: DIFFUSE LARGE B-CELL LYMPHOMA

REACTIONS (3)
  - Neutropenia [Unknown]
  - Mucosal inflammation [Unknown]
  - Pseudomonal sepsis [Unknown]
